FAERS Safety Report 8158635 (Version 5)
Quarter: 2013Q4

REPORT INFORMATION
  Report Type: Spontaneous
  Country: US (occurrence: US)
  Receive Date: 20110927
  Receipt Date: 20131115
  Transmission Date: 20140711
  Serious: Yes (Hospitalization)
  Sender: FDA-Public Use
  Company Number: US-ASTRAZENECA-2011SE55875

PATIENT
  Age: 63 Year
  Sex: Male

DRUGS (1)
  1. NEXIUM [Suspect]
     Route: 048

REACTIONS (8)
  - Gastrointestinal ulcer haemorrhage [Unknown]
  - Diverticulitis [Unknown]
  - Pancreatitis [Unknown]
  - Gastrointestinal inflammation [Unknown]
  - Duodenal ulcer [Unknown]
  - Abdominal discomfort [Unknown]
  - Chest pain [Unknown]
  - Drug dose omission [Unknown]
